FAERS Safety Report 9311200 (Version 3)
Quarter: 2013Q3

REPORT INFORMATION
  Report Type: Report from Study
  Country: US (occurrence: US)
  Receive Date: 20130528
  Receipt Date: 20130802
  Transmission Date: 20140515
  Serious: Yes (Other)
  Sender: FDA-Public Use
  Company Number: US-JNJFOC-20130515002

PATIENT
  Sex: Female
  Weight: 50.8 kg

DRUGS (25)
  1. REMICADE [Suspect]
     Indication: RHEUMATOID ARTHRITIS
     Route: 042
     Dates: start: 20130728
  2. REMICADE [Suspect]
     Indication: RHEUMATOID ARTHRITIS
     Route: 042
     Dates: start: 20130605
  3. REMICADE [Suspect]
     Indication: RHEUMATOID ARTHRITIS
     Route: 042
     Dates: start: 20130320
  4. REMICADE [Suspect]
     Indication: RHEUMATOID ARTHRITIS
     Route: 042
     Dates: start: 20130128
  5. REMICADE [Suspect]
     Indication: RHEUMATOID ARTHRITIS
     Route: 042
     Dates: start: 20071017
  6. METHOTREXATE [Suspect]
     Indication: RHEUMATOID ARTHRITIS
     Dosage: 15 MG (6 TABLETS EVERY 7 DAYS)
     Route: 048
  7. NITROGLYCERIN [Concomitant]
     Indication: CORONARY ARTERY DISEASE
     Dosage: 1 TAB UNDER THE TONGUE AND ALLOW TO DISSOLVE AS NEEDED EVERY 5 MINUTES OF CHEST PAIN AS NECESSARY
     Route: 060
  8. LEVOTHROID [Concomitant]
     Dosage: 1 TAB EVERY MORNING ON AN EMPTY STOMACH
     Route: 065
  9. DESOXIMETASONE [Concomitant]
     Dosage: 1 APPLICATION SPARINGLY TO AFFECTED AREA AS NECESSARY
     Route: 065
  10. JANUVIA [Concomitant]
     Route: 065
  11. CICLOPIROX OLAMINE [Concomitant]
     Dosage: 1 APPLICATION TO AFFECTED AREA
     Route: 065
  12. GLIPIZIDE [Concomitant]
     Route: 065
  13. NASONEX [Concomitant]
     Dosage: 2 SPRAYS HS AS NECESSARY
     Route: 065
  14. CLOTRIMAZOLE [Concomitant]
     Dosage: 1 APPLICATION TO AFFECTED AREA TWICE A DAY
     Route: 065
  15. CARDIZEM CD [Concomitant]
     Dosage: EVERY DAY BEFORE NOON
     Route: 065
  16. LANOXIN [Concomitant]
     Route: 065
  17. VITAMIN D3 [Concomitant]
     Route: 065
  18. ZOCOR [Concomitant]
     Route: 065
  19. ACETAMINOPHEN [Concomitant]
     Dosage: 1000 MG
     Route: 065
  20. ADVAIR DISKUS [Concomitant]
     Dosage: 250-50 MCG/DOSE AEROSOL POWDER BREATH ACTIVATED
     Route: 048
  21. AMLODIPINE BESYLATE [Concomitant]
     Route: 065
  22. PLAQUENIL [Concomitant]
     Route: 048
  23. OMEPRAZOLE [Concomitant]
     Route: 065
  24. CARAFATE [Concomitant]
     Dosage: 30 MINS PRIOR TO MEALS AND AT BEDTIME
     Route: 048
  25. LEVAQUIN [Concomitant]
     Route: 048

REACTIONS (6)
  - Sinusitis [Recovering/Resolving]
  - Neck pain [Unknown]
  - Macrocytosis [Unknown]
  - Nasal polyps [Recovering/Resolving]
  - Blood glucose decreased [Unknown]
  - Constipation [Unknown]
